FAERS Safety Report 5774691-7 (Version None)
Quarter: 2008Q2

REPORT INFORMATION
  Report Type: 
  Country: None (occurrence: None)
  Receive Date: 20080616
  Receipt Date: 20080616
  Transmission Date: 20081010
  Serious: Yes (Other)
  Sender: FDA-Public Use
  Company Number: None

PATIENT
  Sex: Male
  Weight: 58.514 kg

DRUGS (2)
  1. CETIRIZINE HCL [Suspect]
     Indication: ASTHMA
     Dosage: 10MG 1 TAB DAILY ORAL
     Route: 048
     Dates: start: 20080317
  2. CETIRIZINE HCL [Suspect]
     Indication: MULTIPLE ALLERGIES
     Dosage: 10MG 1 TAB DAILY ORAL
     Route: 048
     Dates: start: 20080317

REACTIONS (1)
  - URTICARIA [None]
